FAERS Safety Report 6253433-5 (Version None)
Quarter: 2009Q3

REPORT INFORMATION
  Report Type: 
  Country: None (occurrence: None)
  Receive Date: 20090701
  Receipt Date: 20090623
  Transmission Date: 20100115
  Serious: Yes (Death)
  Sender: FDA-Public Use
  Company Number: US-SANOFI-SYNTHELABO-A03200902795

PATIENT
  Age: 47 Year
  Sex: Female

DRUGS (1)
  1. AMBIEN CR [Suspect]
     Indication: SLEEP DISORDER
     Route: 048
     Dates: start: 20080601

REACTIONS (3)
  - GUN SHOT WOUND [None]
  - PERSONALITY CHANGE [None]
  - SUICIDAL IDEATION [None]
